FAERS Safety Report 6804593-6 (Version None)
Quarter: 2010Q2

REPORT INFORMATION
  Report Type: 
  Country: None (occurrence: None)
  Receive Date: 20100628
  Receipt Date: 20071011
  Transmission Date: 20101027
  Serious: Yes (Other)
  Sender: FDA-Public Use
  Company Number: US-PFIZER INC-2007017338

PATIENT
  Sex: Female
  Weight: 54.4 kg

DRUGS (2)
  1. SUTENT [Suspect]
  2. PAXIL [Concomitant]

REACTIONS (1)
  - GASTRITIS [None]
